FAERS Safety Report 11128374 (Version 1)
Quarter: 2015Q2

REPORT INFORMATION
  Report Type: Spontaneous
  Country: US (occurrence: None)
  Receive Date: 20150520
  Receipt Date: 20150520
  Transmission Date: 20150821
  Serious: Yes (Hospitalization)
  Sender: FDA-Public Use
  Company Number: None

PATIENT
  Age: 44 Year
  Sex: Female
  Weight: 83 kg

DRUGS (4)
  1. CARBOPLATIN AUC 6 [Suspect]
     Active Substance: CARBOPLATIN
     Indication: BREAST CANCER
     Dosage: 900MG DAY 1 EACH CYCLE
     Route: 042
     Dates: start: 20150505
  2. ABRAXANE [Suspect]
     Active Substance: PACLITAXEL
     Indication: TRIPLE NEGATIVE BREAST CANCER
     Dosage: 194 MG DAY 1 AND DAY 8
     Route: 042
     Dates: start: 20150505, end: 20150512
  3. ABRAXANE [Suspect]
     Active Substance: PACLITAXEL
     Indication: BREAST CANCER
     Dosage: 194 MG DAY 1 AND DAY 8
     Route: 042
     Dates: start: 20150505, end: 20150512
  4. CARBOPLATIN AUC 6 [Suspect]
     Active Substance: CARBOPLATIN
     Indication: TRIPLE NEGATIVE BREAST CANCER
     Dosage: 900MG DAY 1 EACH CYCLE
     Route: 042
     Dates: start: 20150505

REACTIONS (3)
  - Febrile neutropenia [None]
  - Anaemia [None]
  - Platelet count decreased [None]

NARRATIVE: CASE EVENT DATE: 20150516
